FAERS Safety Report 9521458 (Version 1)
Quarter: 2013Q3

REPORT INFORMATION
  Report Type: Spontaneous
  Country: US (occurrence: US)
  Receive Date: 20130913
  Receipt Date: 20130913
  Transmission Date: 20140515
  Serious: Yes (Hospitalization)
  Sender: FDA-Public Use
  Company Number: US-PFIZER INC-2013262995

PATIENT
  Age: 50 Year
  Sex: Female
  Weight: 65.31 kg

DRUGS (15)
  1. LYRICA [Suspect]
     Indication: FIBROMYALGIA
     Dosage: 25 MG, 2X/DAY
     Route: 048
     Dates: start: 2013, end: 201308
  2. MORPHINE [Concomitant]
     Dosage: 30 MG, 2X/DAY
  3. HYDROCODONE W/ACETAMINOPHEN [Concomitant]
     Dosage: 10/500 MG, 3X/DAY
  4. COUMADINE [Concomitant]
     Indication: BLOOD DISORDER
     Dosage: 2.5 MG, 1X/DAY
  5. AMBIEN [Concomitant]
     Dosage: 5 MG, 1X/DAY
  6. BENAZEPRIL [Concomitant]
     Dosage: 20 MG, 1X/DAY
  7. LEVOTHYROXINE [Concomitant]
     Dosage: 100 UG, 1X/DAY
  8. AMLODIPINE [Concomitant]
     Dosage: 5 MG, 1X/DAY
  9. PROMETHAZINE [Concomitant]
     Dosage: 25 MG, AS NEEDED
  10. PROZAC [Concomitant]
     Dosage: 20 MG, 1X/DAY
  11. PROAIR HFA [Concomitant]
     Indication: EMPHYSEMA
     Dosage: 90 UG, UNK INHALER
  12. SYMBICORT [Concomitant]
     Dosage: 160/4.5 UG, 2X/DAY INHALER
  13. ALBUTEROL [Concomitant]
     Dosage: UNK AS NEBULISER
  14. SPIRIVA [Concomitant]
     Dosage: UNK AS HANDIHALER
  15. OXYGEN [Concomitant]
     Dosage: 3 ML, UNK CONTINUOUSLY

REACTIONS (2)
  - Peripheral vascular disorder [Not Recovered/Not Resolved]
  - Pain [Not Recovered/Not Resolved]
